FAERS Safety Report 18173735 (Version 7)
Quarter: 2022Q4

REPORT INFORMATION
  Report Type: Spontaneous
  Country: CA (occurrence: CA)
  Receive Date: 20200820
  Receipt Date: 20221219
  Transmission Date: 20230112
  Serious: Yes (Hospitalization, Other)
  Sender: FDA-Public Use
  Company Number: CA-APOTEX-2008AP002342

PATIENT
  Age: 49 Year
  Sex: Female

DRUGS (25)
  1. PAROXETINE [Interacting]
     Active Substance: PAROXETINE
     Indication: Depression
     Dosage: 40 MILLIGRAM
     Route: 065
  2. PAROXETINE [Interacting]
     Active Substance: PAROXETINE
     Indication: Anxiety
  3. QUETIAPINE [Suspect]
     Active Substance: QUETIAPINE
     Indication: Depression
     Dosage: 25 MILLIGRAM, TWO TIMES A DAY
     Route: 048
  4. QUETIAPINE [Suspect]
     Active Substance: QUETIAPINE
     Indication: Anxiety
     Dosage: 25 MILLIGRAM, ONCE A DAY
     Route: 065
  5. QUETIAPINE [Suspect]
     Active Substance: QUETIAPINE
     Indication: Hypotension
  6. ROCURONIUM [Interacting]
     Active Substance: ROCURONIUM BROMIDE
     Indication: Hypotonia
     Dosage: 1 MILLIGRAM/KILOGRAM
     Route: 065
  7. ROCURONIUM [Interacting]
     Active Substance: ROCURONIUM BROMIDE
     Indication: Depression
  8. ROCURONIUM [Interacting]
     Active Substance: ROCURONIUM BROMIDE
     Indication: Anxiety
  9. CLONAZEPAM [Interacting]
     Active Substance: CLONAZEPAM
     Indication: Anxiety
     Dosage: 1 MILLIGRAM
     Route: 065
  10. CLONAZEPAM [Interacting]
     Active Substance: CLONAZEPAM
     Indication: Depression
     Dosage: 0.5 MILLIGRAM
     Route: 048
  11. DIAZEPAM [Interacting]
     Active Substance: DIAZEPAM
     Indication: Preoperative care
     Dosage: 10 MILLIGRAM
     Route: 065
  12. FENTANYL [Interacting]
     Active Substance: FENTANYL
     Indication: Anaesthesia
     Dosage: 13 MICROGRAM/KILOGRAM
     Route: 042
  13. FLUVOXAMINE [Interacting]
     Active Substance: FLUVOXAMINE
     Indication: Product used for unknown indication
     Dosage: UNK
     Route: 065
  14. MEPERIDINE [Interacting]
     Active Substance: MEPERIDINE
     Indication: Product used for unknown indication
     Dosage: UNK
     Route: 065
  15. METHYLENE BLUE [Interacting]
     Active Substance: METHYLENE BLUE
     Indication: Hypotension
     Dosage: 1 MILLIGRAM/KILOGRAM
     Route: 065
  16. METHYLENE BLUE [Interacting]
     Active Substance: METHYLENE BLUE
     Indication: Anaesthesia
  17. MIDAZOLAM [Interacting]
     Active Substance: MIDAZOLAM
     Indication: Anaesthesia
     Dosage: 0.3 MICROGRAM/KILOGRAM
     Route: 065
  18. MIDAZOLAM [Interacting]
     Active Substance: MIDAZOLAM
     Indication: Hypotension
  19. NOREPINEPHRINE [Interacting]
     Active Substance: NOREPINEPHRINE
     Indication: Hypotension
     Dosage: UNK
     Route: 065
  20. PROPOFOL [Interacting]
     Active Substance: PROPOFOL
     Indication: Induction of anaesthesia
     Dosage: 9 MILLIGRAM/KILOGRAM
     Route: 065
  21. SEVOFLURANE [Interacting]
     Active Substance: SEVOFLURANE
     Indication: Maintenance of anaesthesia
     Dosage: UNK
  22. SEVOFLURANE [Interacting]
     Active Substance: SEVOFLURANE
     Indication: Depression
  23. SEVOFLURANE [Interacting]
     Active Substance: SEVOFLURANE
     Indication: Anxiety
  24. SEROQUEL [Interacting]
     Active Substance: QUETIAPINE FUMARATE
     Indication: Anxiety
     Dosage: 25 MILLIGRAM, TWO TIMES A DAY
     Route: 065
  25. SEROQUEL [Interacting]
     Active Substance: QUETIAPINE FUMARATE
     Indication: Depression

REACTIONS (11)
  - Alanine aminotransferase increased [Recovered/Resolved]
  - Amylase increased [Recovered/Resolved]
  - Blood lactate dehydrogenase increased [Recovered/Resolved]
  - Blood creatine phosphokinase increased [Recovered/Resolved]
  - Blood potassium increased [Recovered/Resolved]
  - Drug interaction [Recovered/Resolved]
  - Hypotension [Recovered/Resolved]
  - Myoglobin urine present [Recovered/Resolved]
  - Serotonin syndrome [Recovered/Resolved]
  - Toxic encephalopathy [Recovered/Resolved]
  - Troponin increased [Recovered/Resolved]
